FAERS Safety Report 5179244-X (Version None)
Quarter: 2006Q4

REPORT INFORMATION
  Report Type: 
  Country: None (occurrence: None)
  Receive Date: 20061219
  Receipt Date: 20061117
  Transmission Date: 20070319
  Serious: Yes (Hospitalization)
  Sender: FDA-Public Use
  Company Number: DE-PURDUE-DEU_2006_0002679

PATIENT
  Age: 60 Year
  Sex: Female

DRUGS (1)
  1. TARGIN 10/5 MG RETARDTABLETTEN [Suspect]
     Indication: PAIN
     Dosage: 10 MG, BID
     Route: 048

REACTIONS (2)
  - CARDIAC DISORDER [None]
  - MUSCULOSKELETAL PAIN [None]
